FAERS Safety Report 23677044 (Version 6)
Quarter: 2024Q4

REPORT INFORMATION
  Report Type: Spontaneous
  Country: US (occurrence: US)
  Receive Date: 20240327
  Receipt Date: 20241111
  Transmission Date: 20250115
  Serious: No
  Sender: GLAXOSMITHKLINE
  Company Number: US-GLAXOSMITHKLINE-US2024AMR036820

PATIENT
  Age: 64 Year
  Sex: Female
  Weight: 61.678 kg

DRUGS (5)
  1. ZEJULA [Suspect]
     Active Substance: NIRAPARIB
     Indication: Ovarian cancer
     Dosage: 200 MG, QD
     Route: 048
     Dates: start: 20240228
  2. ZEJULA [Suspect]
     Active Substance: NIRAPARIB
     Indication: Uterine cancer
     Dosage: 200 MG, QD
     Route: 048
     Dates: start: 20240304
  3. ZEJULA [Suspect]
     Active Substance: NIRAPARIB
     Dosage: 200 MG, QD
     Route: 048
  4. DICLOFENAC SODIUM [Concomitant]
     Active Substance: DICLOFENAC SODIUM
     Indication: Product used for unknown indication
     Dosage: UNK
  5. GABAPENTIN [Concomitant]
     Active Substance: GABAPENTIN
     Indication: Product used for unknown indication
     Dosage: UNK

REACTIONS (16)
  - Back pain [Recovering/Resolving]
  - Constipation [Recovering/Resolving]
  - Headache [Unknown]
  - Nasopharyngitis [Recovering/Resolving]
  - Dysphonia [Recovering/Resolving]
  - Pain in extremity [Recovering/Resolving]
  - Condition aggravated [Recovering/Resolving]
  - Muscle swelling [Recovering/Resolving]
  - Spinal pain [Recovering/Resolving]
  - Illness [Recovering/Resolving]
  - Abdominal pain upper [Recovered/Resolved]
  - Myalgia [Recovering/Resolving]
  - Nausea [Unknown]
  - Gastrointestinal disorder [Recovering/Resolving]
  - Product use in unapproved indication [Unknown]
  - Hunger [Recovering/Resolving]

NARRATIVE: CASE EVENT DATE: 20240301
